FAERS Safety Report 6853052-3 (Version None)
Quarter: 2010Q3

REPORT INFORMATION
  Report Type: 
  Country: None (occurrence: None)
  Receive Date: 20100717
  Receipt Date: 20071129
  Transmission Date: 20110219
  Serious: No
  Sender: FDA-Public Use
  Company Number: US-PFIZER INC-2007101381

PATIENT
  Sex: Female
  Weight: 90.7 kg

DRUGS (6)
  1. CHANTIX [Suspect]
     Indication: SMOKING CESSATION THERAPY
     Route: 048
     Dates: start: 20070604, end: 20070704
  2. HYDROCODONE [Concomitant]
  3. VYTORIN [Concomitant]
     Indication: BLOOD CHOLESTEROL INCREASED
  4. ABILIFY [Concomitant]
  5. LITHIUM [Concomitant]
  6. KLONOPIN [Concomitant]

REACTIONS (6)
  - ANXIETY [None]
  - DEPRESSION [None]
  - FLATULENCE [None]
  - INSOMNIA [None]
  - NAUSEA [None]
  - WEIGHT INCREASED [None]
